FAERS Safety Report 23797553 (Version 1)
Quarter: 2024Q2

REPORT INFORMATION
  Report Type: Spontaneous
  Country: RU (occurrence: RU)
  Receive Date: 20240430
  Receipt Date: 20240430
  Transmission Date: 20240716
  Serious: Yes (Other)
  Sender: FDA-Public Use
  Company Number: None

PATIENT

DRUGS (5)
  1. ONCASPAR [Suspect]
     Active Substance: PEGASPARGASE
     Indication: Lymphocytic leukaemia
     Dosage: 640 IU
     Route: 042
     Dates: start: 20240308, end: 20240322
  2. MERCAPTOPURINE [Concomitant]
     Active Substance: MERCAPTOPURINE
     Indication: Lymphocytic leukaemia
     Dosage: 50 MG, 1X/WEEK
     Route: 048
     Dates: start: 20240307
  3. METHOTREXATE [Concomitant]
     Active Substance: METHOTREXATE
     Indication: Lymphocytic leukaemia
     Dosage: 4.8 MG, 1X/WEEK
     Route: 030
     Dates: start: 20240307
  4. ONDANSETRON [Concomitant]
     Active Substance: ONDANSETRON
     Indication: Lymphocytic leukaemia
     Dosage: 5 MG/M2
     Route: 042
     Dates: start: 20240307
  5. CYTARABINE [Concomitant]
     Active Substance: CYTARABINE
     Indication: Product used for unknown indication
     Dosage: 50 MG
     Route: 037
     Dates: start: 20240115

REACTIONS (2)
  - Bronchial obstruction [Recovered/Resolved]
  - Angioedema [Recovered/Resolved]

NARRATIVE: CASE EVENT DATE: 20240322
